FAERS Safety Report 12938964 (Version 2)
Quarter: 2017Q2

REPORT INFORMATION
  Report Type: Spontaneous
  Country: CN (occurrence: CN)
  Receive Date: 20161114
  Receipt Date: 20170407
  Transmission Date: 20170830
  Serious: Yes (Other)
  Sender: FDA-Public Use
  Company Number: CN-BAYER-2016-211807

PATIENT
  Age: 3 Year
  Weight: 15 kg

DRUGS (1)
  1. KOGENATE FS [Suspect]
     Active Substance: ANTIHEMOPHILIC FACTOR, HUMAN RECOMBINANT
     Dosage: 250 IU, ONCE

REACTIONS (5)
  - Haemarthrosis [None]
  - Out of specification test results [None]
  - Drug ineffective [None]
  - Joint swelling [None]
  - Product quality issue [None]
